FAERS Safety Report 8024026-4 (Version None)
Quarter: 2012Q1

REPORT INFORMATION
  Report Type: 
  Country: None (occurrence: None)
  Receive Date: 20120105
  Receipt Date: 20111227
  Transmission Date: 20120608
  Serious: Yes (Hospitalization, Other)
  Sender: FDA-Public Use
  Company Number: US-BAYER-2011-050534

PATIENT
  Age: 27 Year
  Sex: Female
  Weight: 83.9 kg

DRUGS (15)
  1. CIPRODEX [Concomitant]
     Dosage: UNK UNK, QD
     Route: 001
  2. NEXIUM [Concomitant]
     Indication: SENSATION OF FOREIGN BODY
  3. BENTYL [Concomitant]
     Indication: ABDOMINAL PAIN
  4. PENICILLIN [Concomitant]
  5. ACETAMINOPHEN [Concomitant]
     Dosage: UNK UNK, PRN
  6. NAPROXEN [Concomitant]
     Dosage: UNK UNK, QD
  7. VICODIN [Concomitant]
     Route: 048
  8. NAPROXEN (ALEVE) [Concomitant]
     Dosage: UNK UNK, QD
  9. YASMIN [Suspect]
     Indication: ACNE
     Dosage: UNK
     Dates: start: 20090101, end: 20090101
  10. HYOSCYAMINE [Concomitant]
     Indication: IRRITABLE BOWEL SYNDROME
     Dosage: UNK UNK, PRN
     Route: 060
     Dates: start: 20090523, end: 20090612
  11. IBUPROFEN [Concomitant]
     Dosage: UNK UNK, QD
     Route: 048
  12. PRILOSEC [Concomitant]
     Dosage: 20 MG, BID
  13. SIMETHICONE [Concomitant]
     Route: 048
  14. YAZ [Suspect]
     Indication: ACNE
     Dosage: UNK
     Dates: start: 20090101, end: 20090101
  15. PREVACID [Concomitant]
     Indication: ABDOMINAL PAIN
     Dosage: 60 MG, QD
     Route: 048

REACTIONS (9)
  - BILIARY DYSKINESIA [None]
  - PAIN [None]
  - ANXIETY [None]
  - RENAL FAILURE ACUTE [None]
  - CHOLECYSTITIS CHRONIC [None]
  - POST PROCEDURAL INFECTION [None]
  - GALLBLADDER NON-FUNCTIONING [None]
  - CLOSTRIDIUM DIFFICILE COLITIS [None]
  - INJURY [None]
